FAERS Safety Report 7382978-X (Version None)
Quarter: 2011Q1

REPORT INFORMATION
  Report Type: 
  Country: None (occurrence: None)
  Receive Date: 20110330
  Receipt Date: 20110316
  Transmission Date: 20110831
  Serious: Yes (Hospitalization, Other)
  Sender: FDA-Public Use
  Company Number: CG-RANBAXY-2010RR-40316

PATIENT
  Age: 5 Year
  Sex: Male

DRUGS (4)
  1. PARACETAMOL [Suspect]
     Indication: INFLUENZA LIKE ILLNESS
     Dosage: 500 MG, QID
  2. PARACETAMOL [Suspect]
     Indication: VOMITING
  3. PARACETAMOL [Suspect]
     Indication: ARTHRALGIA
  4. PARACETAMOL [Suspect]
     Indication: PYREXIA
     Dosage: 100 MG/KG, UNK

REACTIONS (9)
  - URINE COLOUR ABNORMAL [None]
  - ARTHRALGIA [None]
  - HEPATITIS ACUTE [None]
  - VOMITING [None]
  - PROTHROMBIN TIME SHORTENED [None]
  - JAUNDICE [None]
  - ASTHENIA [None]
  - PYREXIA [None]
  - LIVER FUNCTION TEST ABNORMAL [None]
